FAERS Safety Report 5311454-0 (Version None)
Quarter: 2007Q2

REPORT INFORMATION
  Report Type: 
  Country: None (occurrence: None)
  Receive Date: 20070426
  Receipt Date: 20070426
  Transmission Date: 20071010
  Serious: Yes (Other)
  Sender: FDA-Public Use
  Company Number: None

PATIENT
  Age: 50 Year
  Sex: Male
  Weight: 88.9 kg

DRUGS (16)
  1. CEFTAZIDIME [Suspect]
     Indication: PYREXIA
     Dosage: 1000MG IV ONCE
     Route: 042
     Dates: start: 20070105
  2. CEFTAZIDIME [Suspect]
     Indication: WOUND
     Dosage: 1000MG IV ONCE
     Route: 042
     Dates: start: 20070105
  3. LANSOPRAZOLE [Concomitant]
  4. PAPAIN [Concomitant]
  5. NYSTATIN [Concomitant]
  6. OXYCODONE AND ACETAMINOPHEN [Concomitant]
  7. CITALOPRAM HYDROBROMIDE [Concomitant]
  8. DIAZEPAM [Concomitant]
  9. DOCUSATE MINI ENEMA [Concomitant]
  10. FUROSEMIDE [Concomitant]
  11. GABAPENTIN [Concomitant]
  12. HEPARIN [Concomitant]
  13. MINERALS/MULTIVITAMINS [Concomitant]
  14. OXYBUTYNIN CHLORIDE [Concomitant]
  15. POTASSIUM CHLORIDE [Concomitant]
  16. TRAZODONE HCL [Concomitant]

REACTIONS (3)
  - ERYTHEMA [None]
  - PRURITUS [None]
  - PYREXIA [None]
